FAERS Safety Report 13578071 (Version 2)
Quarter: 2017Q2

REPORT INFORMATION
  Report Type: Report from Study
  Country: TW (occurrence: TW)
  Receive Date: 20170524
  Receipt Date: 20170526
  Transmission Date: 20170830
  Serious: Yes (Life-Threatening)
  Sender: FDA-Public Use
  Company Number: TW-JNJFOC-20170520487

PATIENT
  Age: 51 Year
  Sex: Male
  Weight: 72 kg

DRUGS (8)
  1. PLETAAL [Concomitant]
     Active Substance: CILOSTAZOL
     Route: 065
     Dates: start: 20160902
  2. LIPITOR [Concomitant]
     Active Substance: ATORVASTATIN CALCIUM
     Route: 065
     Dates: start: 20170215
  3. ULTRACET [Concomitant]
     Active Substance: ACETAMINOPHEN\TRAMADOL HYDROCHLORIDE
     Route: 065
     Dates: start: 20160902, end: 20170214
  4. BOKEY [Concomitant]
     Route: 065
     Dates: start: 20160902
  5. STELARA [Suspect]
     Active Substance: USTEKINUMAB
     Indication: PSORIASIS
     Route: 058
     Dates: start: 20150506
  6. METHOTREXATE. [Suspect]
     Active Substance: METHOTREXATE
     Indication: PRODUCT USED FOR UNKNOWN INDICATION
     Route: 065
     Dates: start: 20150302, end: 20160928
  7. UFORMIN [Concomitant]
     Route: 065
     Dates: start: 20170215, end: 20170509
  8. TRAJENTA [Concomitant]
     Active Substance: LINAGLIPTIN
     Route: 065
     Dates: start: 20161123, end: 20170509

REACTIONS (1)
  - Transitional cell carcinoma [Not Recovered/Not Resolved]

NARRATIVE: CASE EVENT DATE: 20170415
